FAERS Safety Report 13978802 (Version 1)
Quarter: 2017Q3

REPORT INFORMATION
  Report Type: Report from Study
  Country: US (occurrence: US)
  Receive Date: 20170915
  Receipt Date: 20170915
  Transmission Date: 20171128
  Serious: Yes (Hospitalization, Other)
  Sender: FDA-Public Use
  Company Number: US-GILEAD-2017-0293005

PATIENT
  Age: 83 Year
  Sex: Female

DRUGS (1)
  1. IDELALISIB [Suspect]
     Active Substance: IDELALISIB
     Indication: B-CELL LYMPHOMA
     Dosage: 150 MG, BID
     Route: 048
     Dates: start: 20170719, end: 201708

REACTIONS (3)
  - Fall [Unknown]
  - Hip fracture [Unknown]
  - Infection [Unknown]

NARRATIVE: CASE EVENT DATE: 2017
